FAERS Safety Report 6899781-7 (Version None)
Quarter: 2010Q3

REPORT INFORMATION
  Report Type: 
  Country: None (occurrence: None)
  Receive Date: 20100708
  Receipt Date: 20090722
  Transmission Date: 20110219
  Serious: Yes (Other)
  Sender: FDA-Public Use
  Company Number: 2009222025

PATIENT
  Age: 51 Year
  Sex: Female
  Weight: 68 kg

DRUGS (5)
  1. CHANTIX [Suspect]
     Indication: SMOKING CESSATION THERAPY
     Dosage: 1 MG, 2X/DAY, ORAL
     Route: 048
     Dates: start: 20090328, end: 20090507
  2. KLONOPIN [Suspect]
     Indication: NERVOUSNESS
     Dosage: 0.5 MG, 2X/DAY, ORAL
     Route: 048
     Dates: start: 20090501, end: 20090507
  3. VENTOLIN [Concomitant]
  4. MONTELUKAST SODIUM [Concomitant]
  5. THEOPHYLLINE [Concomitant]

REACTIONS (21)
  - ALANINE AMINOTRANSFERASE INCREASED [None]
  - ANTASTHMATIC DRUG LEVEL BELOW THERAPEUTIC [None]
  - ANXIETY [None]
  - BLOOD CHOLESTEROL INCREASED [None]
  - BLOOD SODIUM DECREASED [None]
  - CHOKING [None]
  - CONFUSIONAL STATE [None]
  - COUGH [None]
  - DIZZINESS [None]
  - DYSPNOEA [None]
  - FEELING ABNORMAL [None]
  - HEADACHE [None]
  - HIGH DENSITY LIPOPROTEIN INCREASED [None]
  - INSOMNIA [None]
  - LOW DENSITY LIPOPROTEIN INCREASED [None]
  - MEAN CELL HAEMOGLOBIN INCREASED [None]
  - NERVOUSNESS [None]
  - PALPITATIONS [None]
  - PANIC ATTACK [None]
  - TREMOR [None]
  - VITAMIN D DECREASED [None]
